FAERS Safety Report 11257929 (Version 1)
Quarter: 2015Q3

REPORT INFORMATION
  Report Type: Spontaneous
  Country: CN (occurrence: CN)
  Receive Date: 20150710
  Receipt Date: 20150710
  Transmission Date: 20151125
  Serious: Yes (Hospitalization)
  Sender: FDA-Public Use
  Company Number: CN-ROCHE-1606024

PATIENT
  Age: 92 Year
  Sex: Male

DRUGS (1)
  1. ROCEPHIN [Suspect]
     Active Substance: CEFTRIAXONE SODIUM
     Indication: PRODUCT USED FOR UNKNOWN INDICATION
     Route: 041
     Dates: start: 20140702, end: 20140702

REACTIONS (2)
  - Dermatitis [Recovering/Resolving]
  - Tinea pedis [Recovering/Resolving]

NARRATIVE: CASE EVENT DATE: 20140703
